FAERS Safety Report 8363144-8 (Version None)
Quarter: 2012Q2

REPORT INFORMATION
  Report Type: 
  Country: None (occurrence: None)
  Receive Date: 20120514
  Receipt Date: 20120514
  Transmission Date: 20120825
  Serious: Yes (Other)
  Sender: FDA-Public Use
  Company Number: None

PATIENT
  Age: 43 Year
  Sex: Male
  Weight: 86.1834 kg

DRUGS (1)
  1. CIPROFLOXACIN [Suspect]
     Indication: PROSTATITIS
     Dosage: 500 MG TAB  2X A DAY PO
     Route: 048
     Dates: start: 20120330, end: 20120413

REACTIONS (10)
  - PAIN IN EXTREMITY [None]
  - ARTHRALGIA [None]
  - PIRIFORMIS SYNDROME [None]
  - INSOMNIA [None]
  - ACTIVITIES OF DAILY LIVING IMPAIRED [None]
  - TENDONITIS [None]
  - PAIN [None]
  - ANXIETY [None]
  - JOINT CREPITATION [None]
  - DEPRESSION [None]
